FAERS Safety Report 17486701 (Version 1)
Quarter: 2020Q1

REPORT INFORMATION
  Report Type: Spontaneous
  Country: US (occurrence: US)
  Receive Date: 20200219
  Receipt Date: 20200219
  Transmission Date: 20200409
  Serious: Yes (Hospitalization)
  Sender: FDA-Public Use
  Company Number: None

PATIENT
  Age: 62 Year
  Sex: Male

DRUGS (1)
  1. VENETOCLAX (VENTETOCLAX 100MG TAB) [Suspect]
     Active Substance: VENETOCLAX
     Indication: MANTLE CELL LYMPHOMA
     Route: 048
     Dates: start: 20190829, end: 20191029

REACTIONS (4)
  - Cough [None]
  - Wheezing [None]
  - Respiratory failure [None]
  - Dyspnoea exertional [None]

NARRATIVE: CASE EVENT DATE: 20191029
